FAERS Safety Report 25972153 (Version 2)
Quarter: 2025Q4

REPORT INFORMATION
  Report Type: Report from Study
  Country: US (occurrence: US)
  Receive Date: 20251029
  Receipt Date: 20251224
  Transmission Date: 20260118
  Serious: No
  Sender: SANDOZ
  Company Number: US-002147023-NVSC2021US197362

PATIENT
  Sex: Female

DRUGS (2)
  1. OMNITROPE [Suspect]
     Active Substance: SOMATROPIN
     Indication: Product used for unknown indication
     Dosage: UNK
  2. OMNITROPE [Suspect]
     Active Substance: SOMATROPIN

REACTIONS (5)
  - Burning sensation [Unknown]
  - Pain [Unknown]
  - Paraesthesia [Unknown]
  - Device use error [Unknown]
  - Device breakage [Unknown]
